APPROVED DRUG PRODUCT: DURAPREP
Active Ingredient: IODINE POVACRYLEX; ISOPROPYL ALCOHOL
Strength: EQ 0.7% IODINE;74% (6ML)
Dosage Form/Route: SPONGE;TOPICAL
Application: N021586 | Product #001
Applicant: 3M HEALTH CARE INC
Approved: Sep 29, 2006 | RLD: Yes | RS: Yes | Type: OTC